FAERS Safety Report 4599553-2 (Version None)
Quarter: 2005Q1

REPORT INFORMATION
  Report Type: 
  Country: None (occurrence: None)
  Receive Date: 20050303
  Receipt Date: 20050222
  Transmission Date: 20050727
  Serious: Yes (Hospitalization, Other)
  Sender: FDA-Public Use
  Company Number: HQWYE553424FEB05

PATIENT
  Age: 62 Year
  Sex: Female
  Weight: 81.72 kg

DRUGS (8)
  1. PREMPRO [Suspect]
     Indication: ARTIFICIAL MENOPAUSE
     Dosage: 0.45MG/1.5MG, ORAL
     Route: 048
     Dates: start: 20050202
  2. PREMARIN [Suspect]
  3. ALTACE [Concomitant]
  4. TENORMIN [Concomitant]
  5. LITHIUM CARBONATE [Concomitant]
  6. SEROQUEL [Concomitant]
  7. ESKALITH [Concomitant]
  8. DEPAKOTE [Concomitant]

REACTIONS (4)
  - CEREBROVASCULAR ACCIDENT [None]
  - CONDITION AGGRAVATED [None]
  - HYPERTENSION [None]
  - MEDICATION ERROR [None]
